FAERS Safety Report 9489906 (Version 1)
Quarter: 2013Q3

REPORT INFORMATION
  Report Type: Spontaneous
  Country: US (occurrence: US)
  Receive Date: 20130725
  Receipt Date: 20130725
  Transmission Date: 20140515
  Serious: No
  Sender: FDA-Public Use
  Company Number: US-GLAXOSMITHKLINE-A1020252A

PATIENT
  Sex: Male
  Weight: 200 kg

DRUGS (6)
  1. AVANDIA [Suspect]
     Indication: TYPE 2 DIABETES MELLITUS
     Route: 065
  2. GLUCOVANCE [Suspect]
     Indication: TYPE 2 DIABETES MELLITUS
     Route: 065
  3. CAYENNE [Concomitant]
     Indication: TYPE 2 DIABETES MELLITUS
  4. FENNEL [Concomitant]
     Indication: TYPE 2 DIABETES MELLITUS
  5. CINNAMON [Concomitant]
     Indication: TYPE 2 DIABETES MELLITUS
  6. SUPPLEMENT [Concomitant]
     Indication: TYPE 2 DIABETES MELLITUS

REACTIONS (3)
  - Cardiac disorder [Unknown]
  - Weight loss poor [Unknown]
  - Drug ineffective [Unknown]
